FAERS Safety Report 8243743-4 (Version None)
Quarter: 2012Q1

REPORT INFORMATION
  Report Type: 
  Country: None (occurrence: None)
  Receive Date: 20120329
  Receipt Date: 20110711
  Transmission Date: 20120608
  Serious: No
  Sender: FDA-Public Use
  Company Number: US-MYLANLABS-2011S1012031

PATIENT
  Age: 29 Year
  Sex: Male
  Weight: 72.58 kg

DRUGS (1)
  1. EMSAM [Suspect]
     Indication: DEPRESSION
     Dates: start: 20110415, end: 20110607

REACTIONS (4)
  - APPLICATION SITE RASH [None]
  - APPLICATION SITE ERYTHEMA [None]
  - HYPERSENSITIVITY [None]
  - APPLICATION SITE VESICLES [None]
